FAERS Safety Report 9742620 (Version 2)
Quarter: 2015Q3

REPORT INFORMATION
  Report Type: Spontaneous
  Country: US (occurrence: US)
  Receive Date: 20131210
  Receipt Date: 20150804
  Transmission Date: 20151125
  Serious: No
  Sender: FDA-Public Use
  Company Number: US-GILEAD-2009-0024761

PATIENT
  Age: 70 Year
  Sex: Female

DRUGS (15)
  1. SYNTHROID [Concomitant]
     Active Substance: LEVOTHYROXINE SODIUM
  2. ARIMIDEX [Concomitant]
     Active Substance: ANASTROZOLE
  3. WARFARIN [Concomitant]
     Active Substance: WARFARIN
  4. NORVASC [Concomitant]
     Active Substance: AMLODIPINE BESYLATE
  5. AMBIEN [Concomitant]
     Active Substance: ZOLPIDEM TARTRATE
  6. AMIODARONE [Concomitant]
     Active Substance: AMIODARONE
  7. SINGULAIR [Concomitant]
     Active Substance: MONTELUKAST SODIUM
  8. ZOLPIDEM TARTRATE. [Concomitant]
     Active Substance: ZOLPIDEM TARTRATE
  9. LESCOL [Concomitant]
     Active Substance: FLUVASTATIN SODIUM
  10. ATACAND [Concomitant]
     Active Substance: CANDESARTAN CILEXETIL
  11. AMLODIPINE [Concomitant]
     Active Substance: AMLODIPINE BESYLATE
  12. AMIODARONE [Concomitant]
     Active Substance: AMIODARONE
  13. SYNTHROID [Concomitant]
     Active Substance: LEVOTHYROXINE SODIUM
  14. LETAIRIS [Suspect]
     Active Substance: AMBRISENTAN
     Indication: PULMONARY ARTERIAL HYPERTENSION
     Route: 048
     Dates: start: 20090619
  15. PREVACID [Concomitant]
     Active Substance: LANSOPRAZOLE

REACTIONS (1)
  - Anaemia [Recovering/Resolving]
